FAERS Safety Report 24597524 (Version 7)
Quarter: 2025Q3

REPORT INFORMATION
  Report Type: Spontaneous
  Country: US (occurrence: US)
  Receive Date: 20241110
  Receipt Date: 20250813
  Transmission Date: 20251020
  Serious: No
  Sender: SANOFI AVENTIS
  Company Number: US-SA-2024SA303696

PATIENT
  Age: 40 Year
  Sex: Female

DRUGS (2)
  1. DUPIXENT [Suspect]
     Active Substance: DUPILUMAB
     Indication: Asthma
     Route: 058
     Dates: start: 20241016, end: 20241016
  2. DUPIXENT [Suspect]
     Active Substance: DUPILUMAB
     Dosage: 300 MG, QOW
     Route: 058
     Dates: start: 202410

REACTIONS (19)
  - Dysphonia [Unknown]
  - Sinus operation [Unknown]
  - Sleep disorder due to a general medical condition [Unknown]
  - Rhinorrhoea [Unknown]
  - Endometriosis [Unknown]
  - Weight decreased [Unknown]
  - Chest pain [Unknown]
  - Dyspnoea [Recovered/Resolved]
  - Inappropriate schedule of product administration [Recovered/Resolved]
  - Hot flush [Unknown]
  - Migraine [Unknown]
  - Pain [Unknown]
  - Breast pain [Unknown]
  - Asthma [Unknown]
  - Dyspnoea [Recovered/Resolved]
  - Drug ineffective [Unknown]
  - Rebound effect [Unknown]
  - Injection site pain [Unknown]
  - Asthma [Recovered/Resolved]

NARRATIVE: CASE EVENT DATE: 20240101
